FAERS Safety Report 14783145 (Version 1)
Quarter: 2018Q2

REPORT INFORMATION
  Report Type: Spontaneous
  Country: US (occurrence: US)
  Receive Date: 20180412
  Receipt Date: 20180412
  Transmission Date: 20180711
  Serious: Yes (Hospitalization)
  Sender: FDA-Public Use
  Company Number: None

PATIENT
  Sex: Female

DRUGS (20)
  1. TRAZODONE [Concomitant]
     Active Substance: TRAZODONE HYDROCHLORIDE
  2. TRAMADOL. [Concomitant]
     Active Substance: TRAMADOL
  3. CEFTIN [Concomitant]
     Active Substance: CEFUROXIME AXETIL
  4. FASTCLIX [Concomitant]
  5. CYMBALTA [Concomitant]
     Active Substance: DULOXETINE HYDROCHLORIDE
  6. HYDROXYZ HCL [Concomitant]
     Active Substance: HYDROXYZINE HYDROCHLORIDE
  7. HUMIRA [Suspect]
     Active Substance: ADALIMUMAB
     Indication: PSORIASIS
     Route: 058
     Dates: start: 20180131
  8. ACCU-CHEK [Concomitant]
  9. XANAX [Concomitant]
     Active Substance: ALPRAZOLAM
  10. METFORMIN [Concomitant]
     Active Substance: METFORMIN HYDROCHLORIDE
  11. SINGULAIR [Concomitant]
     Active Substance: MONTELUKAST SODIUM
  12. VENTOLIN HFA [Concomitant]
     Active Substance: ALBUTEROL SULFATE
  13. ACITRETIN. [Concomitant]
     Active Substance: ACITRETIN
  14. SENNALAX-S [Concomitant]
     Active Substance: DOCUSATE SODIUM\SENNOSIDES
  15. PREDNISONE. [Concomitant]
     Active Substance: PREDNISONE
  16. METHOTREXATE. [Concomitant]
     Active Substance: METHOTREXATE
  17. GG/PSE ER [Concomitant]
  18. ASPIRIN-LOW [Concomitant]
  19. PENICILLIN VK [Concomitant]
     Active Substance: PENICILLIN V POTASSIUM
  20. FLOVENT [Concomitant]
     Active Substance: FLUTICASONE PROPIONATE

REACTIONS (3)
  - Drug dose omission [None]
  - Dyspnoea [None]
  - Chest pain [None]
